FAERS Safety Report 15798034 (Version 4)
Quarter: 2019Q1

REPORT INFORMATION
  Report Type: Spontaneous
  Country: US (occurrence: BR)
  Receive Date: 20190108
  Receipt Date: 20190225
  Transmission Date: 20190417
  Serious: Yes (Death, Hospitalization, Other)
  Sender: FDA-Public Use
  Company Number: US-SUNOVION-2018SUN005082

PATIENT
  Age: 88 Year
  Sex: Male
  Weight: 45 kg

DRUGS (2)
  1. GLYCOPYRROLATE. [Suspect]
     Active Substance: GLYCOPYRROLATE
     Indication: CHRONIC OBSTRUCTIVE PULMONARY DISEASE
     Dosage: UNK UNK, QD
     Route: 065
     Dates: start: 201810, end: 201812
  2. CENTRUM MEN [Concomitant]
     Indication: PRODUCT USED FOR UNKNOWN INDICATION
     Dosage: UNK
     Route: 065

REACTIONS (15)
  - Paralysis [Recovered/Resolved]
  - Cardiac failure congestive [Fatal]
  - Gait disturbance [Recovering/Resolving]
  - Visual impairment [Recovered/Resolved]
  - Dehydration [Unknown]
  - Pyrexia [Recovered/Resolved]
  - Speech disorder [Recovering/Resolving]
  - Dyspnoea [Recovered/Resolved]
  - Malaise [Recovered/Resolved]
  - Muscular weakness [Recovered/Resolved with Sequelae]
  - Fatigue [Recovering/Resolving]
  - Confusional state [Recovering/Resolving]
  - Chest pain [Recovered/Resolved]
  - Ischaemic stroke [Recovered/Resolved]
  - Pain [Recovered/Resolved]

NARRATIVE: CASE EVENT DATE: 20181224
